FAERS Safety Report 7937939-6 (Version None)
Quarter: 2011Q4

REPORT INFORMATION
  Report Type: 
  Country: None (occurrence: None)
  Receive Date: 20111123
  Receipt Date: 20111108
  Transmission Date: 20120403
  Serious: Yes (Disabling)
  Sender: FDA-Public Use
  Company Number: CA-WATSON-2011-18883

PATIENT
  Sex: Female

DRUGS (2)
  1. EXEMESTANE [Suspect]
     Indication: BREAST CANCER FEMALE
     Dosage: UNK
     Route: 048
     Dates: start: 20070913
  2. TRELSTAR [Suspect]
     Indication: BREAST CANCER FEMALE
     Dosage: UNK
     Route: 030
     Dates: start: 20070718

REACTIONS (1)
  - UPPER LIMB FRACTURE [None]
